FAERS Safety Report 8422573-4 (Version None)
Quarter: 2012Q2

REPORT INFORMATION
  Report Type: 
  Country: None (occurrence: None)
  Receive Date: 20120608
  Receipt Date: 20120604
  Transmission Date: 20120825
  Serious: Yes (Hospitalization, Other)
  Sender: FDA-Public Use
  Company Number: US-PFIZER INC-2011254363

PATIENT
  Sex: Female
  Weight: 62.585 kg

DRUGS (10)
  1. LYRICA [Suspect]
     Indication: HEADACHE
     Dosage: 150 MG, 3X/DAY
     Route: 048
  2. VALIUM [Concomitant]
     Dosage: 10 MG, 1X/DAY
  3. LYRICA [Suspect]
     Indication: FIBROMYALGIA
     Dosage: 150 MG, 3X/DAY
     Route: 048
     Dates: start: 20080101
  4. METHADONE [Concomitant]
     Dosage: UNK
  5. HYDROCODONE [Suspect]
     Indication: MUSCLE SPASMS
     Dosage: UNK
  6. VALIUM [Concomitant]
     Indication: MUSCLE SPASMS
     Dosage: 5 MG, AS NEEDED
  7. CLONIDINE [Suspect]
     Indication: HYPERTENSION
     Dosage: 0.2 MG, AS NEEDED
  8. CLONIDINE [Suspect]
     Indication: ORTHOSTATIC HYPERTENSION
  9. HYDROCODONE [Suspect]
     Indication: HEADACHE
  10. CELEXA [Concomitant]
     Indication: DEPRESSION
     Dosage: 40 MG, DAILY

REACTIONS (11)
  - ABDOMINAL DISTENSION [None]
  - ASPIRATION [None]
  - DRUG DEPENDENCE [None]
  - ORTHOSTATIC HYPERTENSION [None]
  - VOMITING [None]
  - DRY MOUTH [None]
  - DRY EYE [None]
  - CONSTIPATION [None]
  - FEELING ABNORMAL [None]
  - DRUG INEFFECTIVE [None]
  - OVERDOSE [None]
